FAERS Safety Report 4962098-1 (Version None)
Quarter: 2006Q2

REPORT INFORMATION
  Report Type: 
  Country: None (occurrence: None)
  Receive Date: 20060404
  Receipt Date: 20060220
  Transmission Date: 20061013
  Serious: Yes (Hospitalization)
  Sender: FDA-Public Use
  Company Number: US-MERCK-0602USA05389

PATIENT
  Sex: Female
  Weight: 90 kg

DRUGS (3)
  1. VIOXX [Suspect]
     Indication: BACK PAIN
     Route: 048
     Dates: start: 20010128, end: 20020301
  2. VIOXX [Suspect]
     Route: 048
     Dates: start: 20020520, end: 20020620
  3. VIOXX [Suspect]
     Route: 048
     Dates: start: 20030610, end: 20030710

REACTIONS (6)
  - ARRHYTHMIA [None]
  - CHEST PAIN [None]
  - DEPRESSION [None]
  - HYPERTENSION [None]
  - OEDEMA [None]
  - SURGERY [None]
